FAERS Safety Report 7295293-X (Version None)
Quarter: 2011Q1

REPORT INFORMATION
  Report Type: 
  Country: None (occurrence: None)
  Receive Date: 20110216
  Receipt Date: 20110204
  Transmission Date: 20110831
  Serious: Yes (Hospitalization)
  Sender: FDA-Public Use
  Company Number: JP-BAXTER-2010BH018926

PATIENT
  Age: 66 Year
  Sex: Male
  Weight: 56 kg

DRUGS (13)
  1. AMLODIPINE [Concomitant]
     Indication: HYPERTENSION
     Route: 048
     Dates: start: 20040427
  2. EPADEL [Concomitant]
     Indication: HYPERLIPIDAEMIA
     Route: 048
     Dates: start: 20040427
  3. BEZAFIBRATE [Concomitant]
     Indication: HYPERLIPIDAEMIA
     Route: 048
     Dates: start: 20040427
  4. SODIUM PICOSULFATE [Concomitant]
     Indication: CONSTIPATION
     Route: 048
     Dates: start: 20100210
  5. CYCLOPHOSPHAMIDE [Suspect]
     Route: 041
     Dates: start: 20100226, end: 20100226
  6. MASHI-NIN-GAN [Concomitant]
     Indication: CONSTIPATION
     Route: 048
     Dates: start: 20100210
  7. MEVALOTIN [Concomitant]
     Indication: HYPERLIPIDAEMIA
     Route: 048
     Dates: start: 20050627
  8. BLINDED STUDY MEDICATION [Suspect]
     Indication: NON-SMALL CELL LUNG CANCER
     Route: 058
     Dates: start: 20100301, end: 20100315
  9. GLUCOBAY [Concomitant]
     Indication: DIABETES MELLITUS
     Route: 048
     Dates: start: 20090527
  10. MAGNESIUM OXIDE [Concomitant]
     Indication: CONSTIPATION
     Route: 048
     Dates: start: 20100210
  11. CYCLOPHOSPHAMIDE [Suspect]
     Indication: NON-SMALL CELL LUNG CANCER
     Route: 041
     Dates: start: 20100226, end: 20100226
  12. ARICEPT [Concomitant]
     Indication: SENILE DEMENTIA
     Route: 048
     Dates: start: 20100215
  13. MITIGLINIDE [Concomitant]
     Indication: DIABETES MELLITUS
     Route: 048
     Dates: start: 20090527

REACTIONS (1)
  - ANXIETY DISORDER [None]
